FAERS Safety Report 9484275 (Version 1)
Quarter: 2013Q3

REPORT INFORMATION
  Report Type: Spontaneous
  Country: CH (occurrence: CH)
  Receive Date: 20130828
  Receipt Date: 20130828
  Transmission Date: 20140515
  Serious: Yes (Other)
  Sender: FDA-Public Use
  Company Number: CH-ROCHE-1265441

PATIENT
  Age: 27 Year
  Sex: Male

DRUGS (31)
  1. MABTHERA [Suspect]
     Indication: DIFFUSE LARGE B-CELL LYMPHOMA
     Dosage: CYCLIC
     Route: 041
     Dates: start: 20130730, end: 20130730
  2. MABTHERA [Suspect]
     Route: 065
     Dates: start: 20130717
  3. MABTHERA [Suspect]
     Route: 041
     Dates: start: 20130808
  4. METHOTREXATE [Suspect]
     Indication: DIFFUSE LARGE B-CELL LYMPHOMA
     Dosage: CYCLIC
     Route: 041
     Dates: start: 20130731, end: 20130731
  5. BACTRIM [Concomitant]
     Dosage: 800 MG/160 MG
     Route: 048
     Dates: start: 20130712
  6. PERFALGAN [Concomitant]
     Route: 041
     Dates: start: 20130709
  7. DAFALGAN [Concomitant]
     Route: 048
     Dates: start: 20130709
  8. DUROGESIC [Concomitant]
     Dosage: MEDICATED TRANSDERMAL PATCHES, PER HOUR
     Route: 062
  9. SPIRICORT [Concomitant]
     Dosage: PER DAY
     Route: 048
     Dates: start: 20130712, end: 20130721
  10. FORTECORTIN [Concomitant]
     Dosage: PER DAY
     Route: 048
     Dates: start: 20130725
  11. MOTILIUM (SWITZERLAND) [Concomitant]
     Dosage: PER DAY
     Route: 048
     Dates: start: 20130724
  12. NEXIUM [Concomitant]
     Dosage: PER DAY
     Route: 048
     Dates: start: 20130723
  13. VALTREX [Concomitant]
     Dosage: PER DAY
     Route: 048
     Dates: start: 20130712
  14. ZYLORIC [Concomitant]
     Dosage: PER DAY
     Route: 048
     Dates: start: 20130712
  15. EMEND [Concomitant]
     Dosage: PER DAY
     Route: 048
     Dates: start: 20130731, end: 20130802
  16. KYTRIL [Concomitant]
     Dosage: PER DAY
     Route: 048
     Dates: start: 20130731, end: 20130731
  17. CALCIUM FOLINATE [Concomitant]
     Dosage: PER DAY
     Route: 042
     Dates: start: 20130801, end: 20130802
  18. LEUCOVORIN [Concomitant]
     Dosage: PER DAY
     Route: 042
     Dates: start: 20130802, end: 20130803
  19. FRAGMIN [Concomitant]
     Dosage: PER DAY
     Route: 058
     Dates: start: 20130709
  20. NATRIUM BICARBONATE [Concomitant]
     Route: 042
     Dates: start: 20130731, end: 20130803
  21. PEGFILGRASTIM [Concomitant]
     Dosage: PER DAY
     Route: 058
     Dates: start: 20130720, end: 20130720
  22. KALIUM CHLORID [Concomitant]
     Route: 042
     Dates: start: 20130731, end: 20130803
  23. LASIX [Concomitant]
     Dosage: AS NECESSARY
     Route: 042
     Dates: start: 20130730, end: 20130730
  24. ZOFRAN [Concomitant]
     Dosage: AS NECESSARY
     Route: 048
     Dates: start: 20130730, end: 20130730
  25. PASPERTIN [Concomitant]
     Dosage: AS REQUIRED
     Route: 065
  26. MORPHIN HCL [Concomitant]
     Dosage: AS REQUIRED
     Route: 042
     Dates: start: 20130717, end: 20130731
  27. IMPORTAL [Concomitant]
     Route: 048
     Dates: start: 20130722, end: 20130730
  28. CYCLOPHOSPHAMIDE [Concomitant]
  29. PREDNISOLONE [Concomitant]
  30. DOXORUBICIN [Concomitant]
  31. VINCRISTINE [Concomitant]

REACTIONS (9)
  - Dry eye [Not Recovered/Not Resolved]
  - Lacrimation increased [Not Recovered/Not Resolved]
  - Vision blurred [Not Recovered/Not Resolved]
  - Nausea [Recovered/Resolved]
  - Vomiting [Recovered/Resolved]
  - Abdominal pain [Recovered/Resolved]
  - Hyperhidrosis [Recovered/Resolved]
  - Pain in extremity [Recovered/Resolved]
  - Pancytopenia [Recovered/Resolved]
